FAERS Safety Report 7789658-7 (Version None)
Quarter: 2011Q3

REPORT INFORMATION
  Report Type: 
  Country: None (occurrence: None)
  Receive Date: 20110930
  Receipt Date: 20110916
  Transmission Date: 20111222
  Serious: Yes (Other)
  Sender: FDA-Public Use
  Company Number: US-BAYER-2011-013857

PATIENT
  Age: 22 Year
  Sex: Female
  Weight: 83 kg

DRUGS (10)
  1. DROSPIRENONE AND ETHINYL ESTRADIOL [Suspect]
     Indication: CONTRACEPTION
     Dosage: UNK
     Route: 048
     Dates: start: 20090501, end: 20100101
  2. AZITHROMYCIN [Concomitant]
     Dosage: 250 MG
  3. TRIAMCINOLONE [Concomitant]
  4. NAPROXEN [Concomitant]
  5. YASMIN [Suspect]
     Indication: CONTRACEPTION
     Dosage: UNK
     Route: 048
     Dates: start: 20060101, end: 20090101
  6. ASCORBIC ACID [Concomitant]
     Dosage: UNK
     Route: 048
     Dates: start: 20090104
  7. EURAX [Concomitant]
  8. MENTHOL [Concomitant]
  9. DAYQUILL [Concomitant]
     Dosage: UNK
     Route: 048
     Dates: start: 20090104
  10. PREDNISONE [Concomitant]
     Dosage: 10 MG

REACTIONS (3)
  - INJURY [None]
  - GRAND MAL CONVULSION [None]
  - PAIN [None]
